FAERS Safety Report 6753031-0 (Version None)
Quarter: 2010Q2

REPORT INFORMATION
  Report Type: 
  Country: None (occurrence: None)
  Receive Date: 20100603
  Receipt Date: 20100601
  Transmission Date: 20101027
  Serious: Yes (Hospitalization, Other)
  Sender: FDA-Public Use
  Company Number: US-JNJFOC-20090702947

PATIENT
  Age: 47 Year
  Sex: Female

DRUGS (2)
  1. ULTRAM [Suspect]
     Indication: PAIN
     Route: 048
  2. ANTICONVULSANT [Concomitant]
     Route: 065

REACTIONS (4)
  - ELECTROCARDIOGRAM QT PROLONGED [None]
  - OVERDOSE [None]
  - SOMNOLENCE [None]
  - VOMITING [None]
